FAERS Safety Report 8776307 (Version 1)
Quarter: 2012Q4

REPORT INFORMATION
  Report Type: 
  Country: FR (occurrence: FR)
  Receive Date: 20120910
  Receipt Date: 20120910
  Transmission Date: 20130627
  Serious: Yes (Death, Hospitalization)
  Sender: FDA-Public Use
  Company Number: FR-B.I. PHARMACEUTICALS,INC./RIDGEFIELD-2012-FF-01184FF

PATIENT
  Age: 90 Year
  Sex: Male

DRUGS (3)
  1. MICARDIS [Suspect]
     Route: 048
  2. LASILIX [Suspect]
     Route: 048
  3. TAREG [Suspect]
     Route: 048

REACTIONS (2)
  - Clostridium difficile colitis [Fatal]
  - Renal failure [Unknown]
